FAERS Safety Report 9601695 (Version 1)
Quarter: 2013Q4

REPORT INFORMATION
  Report Type: Spontaneous
  Country: NL (occurrence: NL)
  Receive Date: 20131007
  Receipt Date: 20131007
  Transmission Date: 20140711
  Serious: Yes (Other)
  Sender: FDA-Public Use
  Company Number: NL-AMGEN-NLDSP2013068079

PATIENT
  Age: 64 Year
  Sex: Female

DRUGS (4)
  1. NEULASTA [Suspect]
     Indication: PRODUCT USED FOR UNKNOWN INDICATION
     Dosage: 6 MG, ONCE AFTER CHEMO
     Route: 058
     Dates: start: 20130904
  2. CHEMOTHERAPEUTICS [Concomitant]
     Indication: BREAST CANCER
     Dosage: UNK
  3. TRAMADOL [Concomitant]
     Dosage: UNK
  4. HIRUDOID                           /00723701/ [Concomitant]
     Dosage: UNK

REACTIONS (5)
  - Phlebitis [Unknown]
  - Bone pain [Unknown]
  - Diarrhoea [Unknown]
  - Ageusia [Unknown]
  - Eye pain [Unknown]
